FAERS Safety Report 8066918-6 (Version None)
Quarter: 2012Q1

REPORT INFORMATION
  Report Type: 
  Country: None (occurrence: None)
  Receive Date: 20120124
  Receipt Date: 20120117
  Transmission Date: 20120608
  Serious: Yes (Hospitalization)
  Sender: FDA-Public Use
  Company Number: PHHO2005US12514

PATIENT
  Sex: Male
  Weight: 101.9 kg

DRUGS (13)
  1. GEMFIBROZIL [Interacting]
     Indication: HYPERTRIGLYCERIDAEMIA
     Dosage: 600 MG, BID
     Route: 048
     Dates: start: 20020212
  2. DIOVAN [Concomitant]
  3. COLACE [Concomitant]
  4. CARDURA [Concomitant]
  5. ZORTRESS [Suspect]
     Indication: HEART TRANSPLANT
     Dosage: 3 MG, QD
     Route: 048
     Dates: start: 20000202
  6. ASPIRIN [Concomitant]
  7. NEORAL [Interacting]
     Indication: HEART TRANSPLANT
     Dosage: 100 MG, BID
     Route: 048
     Dates: start: 20000206
  8. LOPID [Concomitant]
  9. CALCIUM CARBONATE [Concomitant]
  10. GLUCOTROL [Concomitant]
  11. VYTORIN [Interacting]
     Indication: HYPERTRIGLYCERIDAEMIA
     Dosage: 10 MG, QD
     Route: 048
     Dates: start: 20050207, end: 20050711
  12. INSULIN [Concomitant]
  13. PRAVACHOL [Concomitant]

REACTIONS (12)
  - MUSCULAR WEAKNESS [None]
  - MALAISE [None]
  - ORTHOSTATIC HYPOTENSION [None]
  - DIZZINESS POSTURAL [None]
  - BLOOD PRESSURE DECREASED [None]
  - MYALGIA [None]
  - BLOOD CREATINE PHOSPHOKINASE INCREASED [None]
  - TRANSAMINASES INCREASED [None]
  - LIVER FUNCTION TEST ABNORMAL [None]
  - RHABDOMYOLYSIS [None]
  - BLOOD CREATININE ABNORMAL [None]
  - DRUG INTERACTION [None]
